FAERS Safety Report 13636691 (Version 1)
Quarter: 2017Q2

REPORT INFORMATION
  Report Type: Spontaneous
  Country: US (occurrence: US)
  Receive Date: 20170531
  Receipt Date: 20170531
  Transmission Date: 20170830
  Serious: No
  Sender: FDA-Public Use
  Company Number: US-ASTELLAS-1843117

PATIENT
  Age: 76 Year
  Sex: Female

DRUGS (6)
  1. CIPROFLOXACIN. [Concomitant]
     Active Substance: CIPROFLOXACIN
     Route: 065
  2. DEXAMETHASON [Concomitant]
     Active Substance: DEXAMETHASONE
     Route: 065
  3. HYDROCODONE BITARTRATE AND ACETAMINOPHEN [Concomitant]
     Active Substance: ACETAMINOPHEN\HYDROCODONE BITARTRATE
     Dosage: TAB 10-325MG AND TAB 5-325MG
     Route: 065
  4. TRAMADOL HCL [Concomitant]
     Active Substance: TRAMADOL HYDROCHLORIDE
     Route: 065
  5. ALEVE [Concomitant]
     Active Substance: NAPROXEN SODIUM
     Route: 065
  6. TARCEVA [Suspect]
     Active Substance: ERLOTINIB HYDROCHLORIDE
     Indication: LUNG NEOPLASM MALIGNANT
     Route: 048
     Dates: start: 20161011

REACTIONS (2)
  - Fatigue [Not Recovered/Not Resolved]
  - Rash [Not Recovered/Not Resolved]

NARRATIVE: CASE EVENT DATE: 20161012
